FAERS Safety Report 25431856 (Version 1)
Quarter: 2025Q2

REPORT INFORMATION
  Report Type: Spontaneous
  Country: FR (occurrence: FR)
  Receive Date: 20250613
  Receipt Date: 20250613
  Transmission Date: 20250716
  Serious: Yes (Life-Threatening, Hospitalization)
  Sender: TEVA
  Company Number: None

PATIENT
  Sex: Male

DRUGS (5)
  1. ACETAMINOPHEN [Suspect]
     Active Substance: ACETAMINOPHEN
     Indication: Poisoning deliberate
     Route: 048
  2. TRAMADOL [Suspect]
     Active Substance: TRAMADOL
     Indication: Poisoning deliberate
     Route: 048
  3. IBUPROFEN [Suspect]
     Active Substance: IBUPROFEN
     Indication: Poisoning deliberate
     Route: 048
  4. DESLORATADINE [Suspect]
     Active Substance: DESLORATADINE
     Indication: Poisoning deliberate
     Route: 048
  5. LAMALINE (ACETAMINOPHEN\CAFFEINE\OPIUM) [Suspect]
     Active Substance: ACETAMINOPHEN\CAFFEINE\OPIUM
     Indication: Poisoning deliberate
     Route: 048

REACTIONS (3)
  - Hepatitis acute [Unknown]
  - Poisoning deliberate [Recovered/Resolved]
  - Renal tubular necrosis [Unknown]
